FAERS Safety Report 4877278-3 (Version None)
Quarter: 2006Q1

REPORT INFORMATION
  Report Type: 
  Country: None (occurrence: None)
  Receive Date: 20060106
  Receipt Date: 20051222
  Transmission Date: 20060701
  Serious: Yes (Hospitalization)
  Sender: FDA-Public Use
  Company Number: 2005JP002221

PATIENT
  Age: 53 Year
  Sex: Male
  Weight: 67 kg

DRUGS (15)
  1. PROGRAF [Suspect]
     Indication: MYASTHENIA GRAVIS
     Dosage: SEE IMAGE,, ORAL
     Route: 048
     Dates: start: 20040609, end: 20040719
  2. PROGRAF [Suspect]
     Indication: MYASTHENIA GRAVIS
     Dosage: SEE IMAGE,, ORAL
     Route: 048
     Dates: start: 20040720, end: 20050608
  3. PROGRAF [Suspect]
     Indication: MYASTHENIA GRAVIS
     Dosage: SEE IMAGE,, ORAL
     Route: 048
     Dates: start: 20050609, end: 20050706
  4. PREDNISOLONE [Suspect]
     Indication: MYASTHENIA GRAVIS
     Dosage: SEE IMAGE, ORAL
     Route: 048
     Dates: start: 20040326, end: 20040327
  5. PREDNISOLONE [Suspect]
     Indication: MYASTHENIA GRAVIS
     Dosage: SEE IMAGE, ORAL
     Route: 048
     Dates: start: 20040328, end: 20040331
  6. PREDNISOLONE [Suspect]
     Indication: MYASTHENIA GRAVIS
     Dosage: SEE IMAGE, ORAL
     Route: 048
     Dates: start: 20040401, end: 20040410
  7. PREDNISOLONE [Suspect]
     Indication: MYASTHENIA GRAVIS
     Dosage: SEE IMAGE, ORAL
     Route: 048
     Dates: start: 20040411, end: 20040414
  8. PREDNISOLONE [Suspect]
     Indication: MYASTHENIA GRAVIS
     Dosage: SEE IMAGE, ORAL
     Route: 048
     Dates: start: 20040415, end: 20040418
  9. PREDNISOLONE [Suspect]
     Indication: MYASTHENIA GRAVIS
     Dosage: SEE IMAGE, ORAL
     Route: 048
     Dates: start: 20040419, end: 20040709
  10. PREDNISOLONE [Suspect]
     Indication: MYASTHENIA GRAVIS
     Dosage: SEE IMAGE, ORAL
     Route: 048
     Dates: start: 20040710
  11. MESTINON [Concomitant]
  12. NORVASC [Concomitant]
  13. GASTER [Concomitant]
  14. MUCODYNE (CARBOCISTEINE) [Concomitant]
  15. LIPITOR [Concomitant]

REACTIONS (5)
  - ACUTE MYELOID LEUKAEMIA [None]
  - ALOPECIA [None]
  - CANDIDIASIS [None]
  - CHROMOSOME ABNORMALITY [None]
  - LYMPHOCYTE COUNT DECREASED [None]
